FAERS Safety Report 17703656 (Version 1)
Quarter: 2020Q2

REPORT INFORMATION
  Report Type: Report from Study
  Country: KR (occurrence: KR)
  Receive Date: 20200424
  Receipt Date: 20200424
  Transmission Date: 20200714
  Serious: Yes (Other)
  Sender: FDA-Public Use
  Company Number: KR-SA-2020SA104290

PATIENT
  Age: 52 Year
  Sex: Female
  Weight: 50.05 kg

DRUGS (8)
  1. TRASTUZUMAB. [Suspect]
     Active Substance: TRASTUZUMAB
     Indication: BREAST CANCER
     Dosage: 600 MG, Q3W
     Route: 058
     Dates: start: 20191028, end: 20191028
  2. ATEZOLIZUMAB. [Suspect]
     Active Substance: ATEZOLIZUMAB
     Indication: BREAST CANCER
     Dosage: 1200 MG, Q3W
     Route: 042
     Dates: start: 20191028, end: 20191028
  3. DOCETAXEL. [Suspect]
     Active Substance: DOCETAXEL
     Dosage: 75 MG/M2, Q3W
     Route: 042
     Dates: start: 20200217, end: 20200217
  4. PERTUZUMAB. [Suspect]
     Active Substance: PERTUZUMAB
     Indication: BREAST CANCER
     Dosage: 840 MG, Q3W
     Route: 042
     Dates: start: 20191028, end: 20191028
  5. ATEZOLIZUMAB. [Suspect]
     Active Substance: ATEZOLIZUMAB
     Dosage: 1200 MG, Q3W
     Route: 042
     Dates: start: 20200217, end: 20200217
  6. PERTUZUMAB. [Suspect]
     Active Substance: PERTUZUMAB
     Dosage: 840 MG, Q3W
     Route: 042
     Dates: start: 20200217, end: 20200217
  7. TRASTUZUMAB. [Suspect]
     Active Substance: TRASTUZUMAB
     Dosage: 600 MG, Q3W
     Route: 058
     Dates: start: 20200217, end: 20200217
  8. DOCETAXEL. [Suspect]
     Active Substance: DOCETAXEL
     Indication: BREAST CANCER
     Dosage: 75 MG/M2, Q3W
     Route: 042
     Dates: start: 20191028, end: 20191028

REACTIONS (1)
  - Thymic cancer metastatic [Not Recovered/Not Resolved]

NARRATIVE: CASE EVENT DATE: 20200401
